FAERS Safety Report 5879210-2 (Version None)
Quarter: 2008Q3

REPORT INFORMATION
  Report Type: 
  Country: None (occurrence: None)
  Receive Date: 20080911
  Receipt Date: 20080911
  Transmission Date: 20090109
  Serious: Yes (Disabling)
  Sender: FDA-Public Use
  Company Number: None

PATIENT
  Age: 68 Year
  Sex: Male
  Weight: 127.0072 kg

DRUGS (1)
  1. LIPITOR [Suspect]
     Indication: BLOOD CHOLESTEROL INCREASED
     Dosage: 1 BEDTIME PO
     Route: 048

REACTIONS (8)
  - BURNING SENSATION [None]
  - GAIT DISTURBANCE [None]
  - MUSCLE ATROPHY [None]
  - MUSCLE SWELLING [None]
  - MYOSITIS [None]
  - OEDEMA PERIPHERAL [None]
  - PAIN IN EXTREMITY [None]
  - POSTURE ABNORMAL [None]
